FAERS Safety Report 7020441-6 (Version None)
Quarter: 2010Q3

REPORT INFORMATION
  Report Type: 
  Country: None (occurrence: None)
  Receive Date: 20100929
  Receipt Date: 20100920
  Transmission Date: 20110219
  Serious: Yes (Disabling)
  Sender: FDA-Public Use
  Company Number: FR-ASTRAZENECA-2010SE44057

PATIENT
  Age: 28862 Day
  Sex: Female

DRUGS (9)
  1. NEXIUM [Suspect]
     Indication: GASTROINTESTINAL HAEMORRHAGE
     Route: 048
     Dates: start: 20100531, end: 20100614
  2. CARBOPLATIN [Suspect]
     Indication: OVARIAN NEOPLASM
     Route: 042
     Dates: start: 20100402, end: 20100514
  3. PACLITAXEL SANDOZ [Suspect]
     Indication: OVARIAN NEOPLASM
     Route: 042
     Dates: start: 20100402, end: 20100514
  4. OFLOCET [Suspect]
     Route: 048
     Dates: start: 20100522, end: 20100530
  5. FLAGYL [Suspect]
     Route: 048
     Dates: start: 20100531, end: 20100617
  6. AUGMENTIN '125' [Suspect]
     Route: 048
     Dates: start: 20100522, end: 20100605
  7. TARGOCID [Suspect]
     Route: 042
     Dates: start: 20100606, end: 20100617
  8. HYDROCORTISONE [Suspect]
     Route: 048
     Dates: start: 20100522, end: 20100530
  9. GENTAMICINE PANPHARMA [Suspect]
     Dates: start: 20100606

REACTIONS (1)
  - NEUROPATHY PERIPHERAL [None]
